FAERS Safety Report 7635175-4 (Version None)
Quarter: 2011Q3

REPORT INFORMATION
  Report Type: 
  Country: None (occurrence: None)
  Receive Date: 20110718
  Receipt Date: 20101202
  Transmission Date: 20111222
  Serious: Yes (Other)
  Sender: FDA-Public Use
  Company Number: 2011SP032201

PATIENT
  Age: 62 Year
  Sex: Female

DRUGS (9)
  1. VITAMIN B1 AND B6 [Concomitant]
  2. ACETAMINOPHEN [Concomitant]
  3. STRUCTUM [Concomitant]
  4. LEVOFLOXACIN [Concomitant]
  5. MIRTAZAPINE [Suspect]
     Indication: DEPRESSION
     Dosage: 15 MG;QD;PO
     Route: 048
     Dates: start: 20100104, end: 20101203
  6. VALACYCLOVIR HYDROCHLORIDE [Concomitant]
  7. GRANOCYTE [Concomitant]
  8. FLUVASTATIN [Concomitant]
  9. AMOXICILLIN [Concomitant]

REACTIONS (3)
  - CYTOLYTIC HEPATITIS [None]
  - CHOLESTASIS [None]
  - ANTINEUTROPHIL CYTOPLASMIC ANTIBODY POSITIVE [None]
